FAERS Safety Report 4488339-5 (Version None)
Quarter: 2004Q4

REPORT INFORMATION
  Report Type: 
  Country: None (occurrence: None)
  Receive Date: 20041026
  Receipt Date: 20041013
  Transmission Date: 20050328
  Serious: Yes (Other)
  Sender: FDA-Public Use
  Company Number: 2004057241

PATIENT
  Sex: Male

DRUGS (13)
  1. NEURONTIN [Suspect]
     Indication: ILL-DEFINED DISORDER
     Dates: start: 20020101
  2. IBUPROFEN [Suspect]
     Indication: ILL-DEFINED DISORDER
  3. ASPIRIN [Suspect]
     Indication: ILL-DEFINED DISORDER
  4. NAPROXEN SODIUM [Suspect]
     Indication: ILL-DEFINED DISORDER
  5. VICODIN [Suspect]
     Indication: ILL-DEFINED DISORDER
  6. CODEINE (CODEINE) [Suspect]
     Indication: ILL-DEFINED DISORDER
  7. ROSIGLITAZONE MALEATE [Concomitant]
  8. FUROSEMIDE [Concomitant]
  9. METOLAZONE [Concomitant]
  10. ESOMEPRAZOLE (ESOMEPTRAZOLE) [Concomitant]
  11. POTASSIUM CHLORIDE [Concomitant]
  12. ROFECOXIB [Concomitant]
  13. METOLAZONE [Concomitant]

REACTIONS (13)
  - CONSTIPATION [None]
  - DIZZINESS [None]
  - DRUG INEFFECTIVE [None]
  - EPISTAXIS [None]
  - FATIGUE [None]
  - HYPOAESTHESIA [None]
  - INSOMNIA [None]
  - INTERVERTEBRAL DISC COMPRESSION [None]
  - LOCALISED INFECTION [None]
  - POLLAKIURIA [None]
  - RENAL PAIN [None]
  - SINUS DISORDER [None]
  - TREATMENT NONCOMPLIANCE [None]
